FAERS Safety Report 21686602 (Version 1)
Quarter: 2022Q4

REPORT INFORMATION
  Report Type: Report from Study
  Country: BR (occurrence: BR)
  Receive Date: 20221206
  Receipt Date: 20221206
  Transmission Date: 20230113
  Serious: Yes (Other)
  Sender: FDA-Public Use
  Company Number: BR-JNJFOC-20221200266

PATIENT
  Age: 58 Year
  Sex: Female

DRUGS (28)
  1. BORTEZOMIB [Suspect]
     Active Substance: BORTEZOMIB
     Indication: Plasma cell myeloma
     Dosage: 2.119 MILLIGRAM
     Route: 065
     Dates: start: 20220428, end: 20220428
  2. BORTEZOMIB [Suspect]
     Active Substance: BORTEZOMIB
     Dosage: 2.119 MILLIGRAM
     Route: 065
     Dates: start: 20220506, end: 20220506
  3. BORTEZOMIB [Suspect]
     Active Substance: BORTEZOMIB
     Dosage: 2.119 MILLIGRAM
     Route: 065
     Dates: start: 20220513, end: 20220513
  4. BORTEZOMIB [Suspect]
     Active Substance: BORTEZOMIB
     Dosage: 2.119 MILLIGRAM
     Route: 065
     Dates: start: 20220520, end: 20220520
  5. BORTEZOMIB [Suspect]
     Active Substance: BORTEZOMIB
     Dosage: 2.132 MILLIGRAM
     Route: 065
     Dates: start: 20220527, end: 20220527
  6. BORTEZOMIB [Suspect]
     Active Substance: BORTEZOMIB
     Dosage: 2.132 MILLIGRAM
     Route: 065
     Dates: start: 20220603, end: 20220603
  7. BORTEZOMIB [Suspect]
     Active Substance: BORTEZOMIB
     Dosage: 2.132 MILLIGRAM
     Route: 065
     Dates: start: 20220610, end: 20220610
  8. BORTEZOMIB [Suspect]
     Active Substance: BORTEZOMIB
     Dosage: 2.132 MILLIGRAM
     Route: 065
     Dates: start: 20220617, end: 20220617
  9. BORTEZOMIB [Suspect]
     Active Substance: BORTEZOMIB
     Dosage: 2.132 MILLIGRAM
     Route: 065
     Dates: start: 20220624, end: 20220624
  10. BORTEZOMIB [Suspect]
     Active Substance: BORTEZOMIB
     Dosage: 2.132 MILLIGRAM
     Route: 065
     Dates: start: 20220704, end: 20220704
  11. BORTEZOMIB [Suspect]
     Active Substance: BORTEZOMIB
     Dosage: 2.132 MILLIGRAM
     Route: 065
     Dates: start: 20220708, end: 20220708
  12. BORTEZOMIB [Suspect]
     Active Substance: BORTEZOMIB
     Dosage: 2.132 MILLIGRAM
     Route: 065
     Dates: start: 20220715, end: 20220715
  13. BORTEZOMIB [Suspect]
     Active Substance: BORTEZOMIB
     Dosage: 2.132 MILLIGRAM
     Route: 065
     Dates: start: 20220722, end: 20220722
  14. BORTEZOMIB [Suspect]
     Active Substance: BORTEZOMIB
     Dosage: 2.132 MILLIGRAM
     Route: 065
     Dates: start: 20220729, end: 20220729
  15. BORTEZOMIB [Suspect]
     Active Substance: BORTEZOMIB
     Dosage: 2.132 MILLIGRAM
     Route: 065
     Dates: start: 20220805, end: 20220805
  16. BORTEZOMIB [Suspect]
     Active Substance: BORTEZOMIB
     Dosage: 2.132 MILLIGRAM
     Route: 065
     Dates: start: 20220812, end: 20220812
  17. DARATUMUMAB [Suspect]
     Active Substance: DARATUMUMAB
     Indication: Plasma cell myeloma
     Dosage: 1800 MILLIGRAM
     Route: 065
     Dates: start: 20220428, end: 20220428
  18. DARATUMUMAB [Suspect]
     Active Substance: DARATUMUMAB
     Dosage: 1800 MILLIGRAM
     Route: 065
     Dates: start: 20220506, end: 20220506
  19. DARATUMUMAB [Suspect]
     Active Substance: DARATUMUMAB
     Dosage: 1800 MILLIGRAM
     Route: 065
     Dates: start: 20220513, end: 20220513
  20. DARATUMUMAB [Suspect]
     Active Substance: DARATUMUMAB
     Dosage: 1800 MILLIGRAM
     Route: 065
     Dates: start: 20220520, end: 20220520
  21. DARATUMUMAB [Suspect]
     Active Substance: DARATUMUMAB
     Dosage: 1800 MILLIGRAM
     Route: 065
     Dates: start: 20220527, end: 20220527
  22. DARATUMUMAB [Suspect]
     Active Substance: DARATUMUMAB
     Dosage: 1800 MILLIGRAM
     Route: 065
     Dates: start: 20220603, end: 20220603
  23. DARATUMUMAB [Suspect]
     Active Substance: DARATUMUMAB
     Dosage: 1800 MILLIGRAM
     Route: 065
     Dates: start: 20220610, end: 20220610
  24. DARATUMUMAB [Suspect]
     Active Substance: DARATUMUMAB
     Dosage: 1800 MILLIGRAM
     Route: 065
     Dates: start: 20220617, end: 20220617
  25. DARATUMUMAB [Suspect]
     Active Substance: DARATUMUMAB
     Dosage: 1800 MILLIGRAM
     Route: 065
     Dates: start: 20220624, end: 20220624
  26. DARATUMUMAB [Suspect]
     Active Substance: DARATUMUMAB
     Dosage: 1800 MILLIGRAM
     Route: 065
     Dates: start: 20220708, end: 20220708
  27. DARATUMUMAB [Suspect]
     Active Substance: DARATUMUMAB
     Dosage: 1800 MILLIGRAM
     Route: 065
     Dates: start: 20220722, end: 20220722
  28. DARATUMUMAB [Suspect]
     Active Substance: DARATUMUMAB
     Dosage: 1800 MILLIGRAM
     Route: 065
     Dates: start: 20220805, end: 20220805

REACTIONS (3)
  - Hepatotoxicity [Recovered/Resolved]
  - Mucosal inflammation [Recovered/Resolved]
  - Gastrointestinal toxicity [Recovered/Resolved with Sequelae]

NARRATIVE: CASE EVENT DATE: 20220901
